FAERS Safety Report 7593852-8 (Version None)
Quarter: 2011Q3

REPORT INFORMATION
  Report Type: 
  Country: None (occurrence: None)
  Receive Date: 20110706
  Receipt Date: 20110704
  Transmission Date: 20111222
  Serious: Yes (Other)
  Sender: FDA-Public Use
  Company Number: JP-PFIZER INC-2011149242

PATIENT
  Age: 90 Year
  Sex: Female

DRUGS (6)
  1. ASPIRIN [Concomitant]
  2. HALCION [Concomitant]
  3. LYRICA [Suspect]
     Dosage: 150 MG/DAY
     Route: 048
     Dates: start: 20110628, end: 20110629
  4. MEILAX [Concomitant]
  5. TELMISARTAN AND HYDROCHLOROTHIAZIDE [Concomitant]
  6. PLAVIX [Concomitant]

REACTIONS (4)
  - CONTUSION [None]
  - FALL [None]
  - DIZZINESS [None]
  - LACERATION [None]
